FAERS Safety Report 9266425 (Version 1)
Quarter: 2013Q2

REPORT INFORMATION
  Report Type: Report from Study
  Country: DE (occurrence: DE)
  Receive Date: 20130502
  Receipt Date: 20130502
  Transmission Date: 20140414
  Serious: Yes (Other)
  Sender: FDA-Public Use
  Company Number: DE-ROCHE-1218956

PATIENT
  Age: 63 Year
  Sex: Female
  Weight: 58.2 kg

DRUGS (46)
  1. BEVACIZUMAB [Suspect]
     Indication: BRAIN NEOPLASM MALIGNANT
     Dosage: LAST DOSE PRIOR TO EVENT:11/APR/2013
     Route: 042
     Dates: start: 20120514, end: 20130425
  2. IRINOTECAN [Suspect]
     Indication: BRAIN NEOPLASM MALIGNANT
     Dosage: LAST DOSE PRIOR TO EVENT:11/APR/2013
     Route: 042
     Dates: start: 20120625, end: 20130425
  3. DEXAMETHASONE [Concomitant]
     Route: 065
     Dates: start: 20120317, end: 20120327
  4. DEXAMETHASONE [Concomitant]
     Route: 065
     Dates: start: 20120328, end: 20120328
  5. DEXAMETHASONE [Concomitant]
     Route: 065
     Dates: start: 20120329, end: 20120331
  6. DEXAMETHASONE [Concomitant]
     Route: 065
     Dates: start: 20120314, end: 20120314
  7. DEXAMETHASONE [Concomitant]
     Route: 065
     Dates: start: 20120315, end: 20120316
  8. DEXAMETHASONE [Concomitant]
     Route: 065
     Dates: start: 20120401, end: 20120402
  9. DEXAMETHASONE [Concomitant]
     Route: 065
     Dates: start: 20120625, end: 20120627
  10. DEXAMETHASONE [Concomitant]
     Route: 065
     Dates: start: 20120709, end: 20120711
  11. DEXAMETHASONE [Concomitant]
     Route: 065
     Dates: start: 20120725, end: 20120727
  12. DEXAMETHASONE [Concomitant]
     Route: 065
     Dates: start: 20120806, end: 20120808
  13. DEXAMETHASONE [Concomitant]
     Route: 065
     Dates: start: 20120820, end: 20120822
  14. DEXAMETHASONE [Concomitant]
     Route: 065
     Dates: start: 20120903, end: 20120905
  15. DEXAMETHASONE [Concomitant]
     Route: 065
     Dates: start: 20120914, end: 20120916
  16. DEXAMETHASONE [Concomitant]
     Route: 065
     Dates: start: 20120927, end: 20120929
  17. DEXAMETHASONE [Concomitant]
     Route: 065
     Dates: start: 20121011, end: 20121013
  18. LORAZEPAM [Concomitant]
     Route: 065
     Dates: start: 20120430, end: 20120612
  19. IBUPROFEN [Concomitant]
     Route: 065
     Dates: start: 20120517, end: 20120517
  20. IBUPROFEN [Concomitant]
     Route: 065
     Dates: start: 20120612, end: 20120612
  21. EMEND [Concomitant]
     Route: 065
     Dates: start: 20120625, end: 20120625
  22. EMEND [Concomitant]
     Route: 065
     Dates: start: 20120626, end: 20120627
  23. EMEND [Concomitant]
     Route: 065
     Dates: start: 20120709, end: 20120709
  24. EMEND [Concomitant]
     Route: 065
     Dates: start: 20120710, end: 20120711
  25. EMEND [Concomitant]
     Route: 065
     Dates: start: 20120725, end: 20120725
  26. EMEND [Concomitant]
     Route: 065
     Dates: start: 20120726, end: 20120727
  27. EMEND [Concomitant]
     Route: 065
     Dates: start: 20120806, end: 20120806
  28. EMEND [Concomitant]
     Route: 065
     Dates: start: 20120807, end: 20120808
  29. EMEND [Concomitant]
     Route: 065
     Dates: start: 20120820, end: 20120820
  30. EMEND [Concomitant]
     Route: 065
     Dates: start: 20120821, end: 20120822
  31. EMEND [Concomitant]
     Route: 065
     Dates: start: 20120903, end: 20120903
  32. EMEND [Concomitant]
     Route: 065
     Dates: start: 20120904, end: 20120905
  33. EMEND [Concomitant]
     Route: 065
     Dates: start: 20120914, end: 20120914
  34. EMEND [Concomitant]
     Route: 065
     Dates: start: 20120915, end: 20120916
  35. EMEND [Concomitant]
     Route: 065
     Dates: start: 20120927, end: 20120927
  36. EMEND [Concomitant]
     Route: 065
     Dates: start: 20120928, end: 20120929
  37. EMEND [Concomitant]
     Route: 065
     Dates: start: 20121011, end: 20121011
  38. EMEND [Concomitant]
     Route: 065
     Dates: start: 20121012, end: 20121013
  39. ONDANSETRON [Concomitant]
     Route: 065
     Dates: start: 20120625, end: 20120625
  40. ONDANSETRON [Concomitant]
     Route: 065
     Dates: start: 20120709, end: 20120711
  41. ONDANSETRON [Concomitant]
     Route: 065
     Dates: start: 20120725, end: 20120727
  42. ONDANSETRON [Concomitant]
     Route: 065
     Dates: start: 20120808, end: 20120808
  43. ONDANSETRON [Concomitant]
     Route: 065
     Dates: start: 20120820, end: 20120822
  44. ONDANSETRON [Concomitant]
     Route: 065
     Dates: start: 20120914, end: 20120916
  45. ONDANSETRON [Concomitant]
     Route: 065
     Dates: start: 20121011, end: 20121013
  46. ISOCILLIN [Concomitant]
     Route: 065
     Dates: start: 20120716, end: 20120728

REACTIONS (1)
  - Osteonecrosis [Unknown]
